FAERS Safety Report 10661603 (Version 5)
Quarter: 2015Q4

REPORT INFORMATION
  Report Type: Spontaneous
  Country: JP (occurrence: JP)
  Receive Date: 20141218
  Receipt Date: 20151215
  Transmission Date: 20160304
  Serious: Yes (Other)
  Sender: FDA-Public Use
  Company Number: JP-UCBSA-2014021665

PATIENT
  Age: 76 Year
  Sex: Male

DRUGS (21)
  1. NEUPRO [Suspect]
     Active Substance: ROTIGOTINE
     Indication: RESTLESS LEGS SYNDROME
     Dosage: 2 MG PER 24 HRS
     Route: 062
     Dates: start: 20140512, end: 20140821
  2. PLETAAL [Concomitant]
     Active Substance: CILOSTAZOL
     Indication: PRODUCT USED FOR UNKNOWN INDICATION
     Dosage: 50 MG, UNK
     Dates: start: 201409
  3. MAINTATE [Concomitant]
     Active Substance: BISOPROLOL FUMARATE
     Indication: PRODUCT USED FOR UNKNOWN INDICATION
     Dosage: 2.5 MG, UNK
     Dates: start: 201211
  4. LENDORMIN [Concomitant]
     Active Substance: BROTIZOLAM
     Indication: PRODUCT USED FOR UNKNOWN INDICATION
     Dosage: 0.25 MG DAILY
     Dates: start: 201304
  5. ASPARA POTASSIUM [Concomitant]
     Active Substance: POTASSIUM ASPARTATE
     Indication: PRODUCT USED FOR UNKNOWN INDICATION
     Dosage: UNK
     Dates: start: 20150930
  6. FULSTAN [Concomitant]
     Indication: PRODUCT USED FOR UNKNOWN INDICATION
     Dosage: 0.15 ?G, UNK
     Dates: start: 201401
  7. WARFARIN POTASSIUM [Concomitant]
     Active Substance: WARFARIN POTASSIUM
     Indication: PRODUCT USED FOR UNKNOWN INDICATION
     Dosage: DAILY DOSE 1.5 MG
     Dates: start: 201211
  8. LACTOMIN [Concomitant]
     Active Substance: LACTOBACILLUS ACIDOPHILUS
     Indication: PRODUCT USED FOR UNKNOWN INDICATION
     Dosage: DAILY 3 TABLETS
     Dates: start: 201210
  9. HALCION [Concomitant]
     Active Substance: TRIAZOLAM
     Indication: PRODUCT USED FOR UNKNOWN INDICATION
     Dosage: 0.25 MG DAILY
     Dates: start: 201305, end: 201501
  10. NEUPRO [Suspect]
     Active Substance: ROTIGOTINE
     Dosage: 2 MG PER 24 HRS
     Route: 062
     Dates: start: 20141212, end: 20151008
  11. NEUQUINON [Concomitant]
     Active Substance: UBIDECARENONE
     Indication: PRODUCT USED FOR UNKNOWN INDICATION
     Dosage: 10 MG, UNK
     Dates: start: 201306
  12. NEUPRO [Suspect]
     Active Substance: ROTIGOTINE
     Dosage: 4 MG PER 24 HRS
     Route: 062
     Dates: start: 20140822, end: 20141211
  13. DOPS [Concomitant]
     Active Substance: DROXIDOPA
     Dosage: DAILY DOSE 200 MG (QAM)
     Dates: start: 201311
  14. POLYFUL [Concomitant]
     Active Substance: CALCIUM POLYCARBOPHIL
     Indication: PRODUCT USED FOR UNKNOWN INDICATION
     Dosage: 500 MG, UNK
     Dates: start: 201310
  15. NEUPRO [Suspect]
     Active Substance: ROTIGOTINE
     Indication: VASCULAR PARKINSONISM
     Dosage: 1 MG PER 24 HRS
     Route: 062
     Dates: start: 20140509, end: 20140511
  16. SODIUM RABEPRAZOLE [Concomitant]
     Active Substance: RABEPRAZOLE SODIUM
     Indication: PRODUCT USED FOR UNKNOWN INDICATION
     Dosage: DAILY DOSE : 10 MG
     Dates: start: 201302
  17. FALECALCITRIOL [Concomitant]
     Active Substance: FALECALCITRIOL
     Indication: PRODUCT USED FOR UNKNOWN INDICATION
     Dosage: DAILY DOSE: 0.15 ?G
     Dates: start: 201406
  18. WARFARIN POTASSIUM [Concomitant]
     Active Substance: WARFARIN POTASSIUM
     Dosage: DAILY DOSE 0.75 MG
  19. DOPS [Concomitant]
     Active Substance: DROXIDOPA
     Indication: PRODUCT USED FOR UNKNOWN INDICATION
     Dosage: DAILY 200 MG (HD)
     Dates: start: 201301, end: 2013
  20. TROXIPIDE [Concomitant]
     Active Substance: TROXIPIDE
     Indication: PRODUCT USED FOR UNKNOWN INDICATION
     Dosage: DAILY DOSE 100 MG
     Dates: start: 201302
  21. LANIRAPID [Concomitant]
     Active Substance: METILDIGOXIN
     Indication: PRODUCT USED FOR UNKNOWN INDICATION
     Dosage: DAILY DOSE 0.05 MG (BIW AFTER HD)
     Dates: start: 201406

REACTIONS (3)
  - Unresponsive to stimuli [Recovered/Resolved]
  - Altered state of consciousness [Recovered/Resolved]
  - Drug titration error [Unknown]

NARRATIVE: CASE EVENT DATE: 20140512
